FAERS Safety Report 5621351-9 (Version None)
Quarter: 2008Q1

REPORT INFORMATION
  Report Type: 
  Country: None (occurrence: None)
  Receive Date: 20080129
  Receipt Date: 20080114
  Transmission Date: 20080703
  Serious: Yes (Death)
  Sender: FDA-Public Use
  Company Number: B0503194A

PATIENT
  Age: 36 Year
  Sex: Female

DRUGS (4)
  1. ENALAPRIL MALEATE [Suspect]
     Dosage: ORAL
     Route: 048
  2. RANITIDINE HYDROCHLORIDE [Suspect]
     Dosage: ORAL
     Route: 048
  3. ATENOLOL AND CHLORTHALIDONE [Suspect]
     Dosage: ORAL
     Route: 048
  4. HORMONES (FORMULATION UNKNOWN) (HORMONES) [Suspect]
     Dosage: ORAL
     Route: 048

REACTIONS (1)
  - COMPLETED SUICIDE [None]
